FAERS Safety Report 5139659-2 (Version None)
Quarter: 2006Q4

REPORT INFORMATION
  Report Type: 
  Country: None (occurrence: None)
  Receive Date: 20061024
  Receipt Date: 20061009
  Transmission Date: 20070319
  Serious: Yes (Other)
  Sender: FDA-Public Use
  Company Number: 2006RR-04038

PATIENT
  Age: 73 Year
  Sex: Male
  Weight: 80 kg

DRUGS (5)
  1. CIPROFLOXACIN [Suspect]
     Dosage: 500 MG, ORAL
     Route: 048
     Dates: start: 20060908, end: 20060912
  2. ASPIRIN [Concomitant]
  3. BENDROFLUAZIDE [Concomitant]
  4. LISINOPRIL [Concomitant]
  5. SIMVASTATIN [Concomitant]

REACTIONS (2)
  - LIP SWELLING [None]
  - OEDEMA PERIPHERAL [None]
